FAERS Safety Report 6249700-1 (Version None)
Quarter: 2009Q2

REPORT INFORMATION
  Report Type: 
  Country: None (occurrence: None)
  Receive Date: 20090625
  Receipt Date: 20090625
  Transmission Date: 20091009
  Serious: Yes (Hospitalization)
  Sender: FDA-Public Use
  Company Number: None

PATIENT
  Age: 62 Year
  Sex: Male
  Weight: 51.2565 kg

DRUGS (1)
  1. ARIPIPRAZOLE [Suspect]
     Dosage: ARIPIPRAZOLE 20 MG DAILY PO
     Route: 048

REACTIONS (3)
  - AGGRESSION [None]
  - AGITATION [None]
  - CONFUSIONAL STATE [None]
